FAERS Safety Report 4688269-X (Version None)
Quarter: 2005Q2

REPORT INFORMATION
  Report Type: 
  Country: None (occurrence: None)
  Receive Date: 20050610
  Receipt Date: 20041210
  Transmission Date: 20051028
  Serious: Yes (Hospitalization)
  Sender: FDA-Public Use
  Company Number: DE-MERCK-0501DEU00038

PATIENT
  Age: 65 Year
  Sex: Female
  Weight: 58 kg

DRUGS (9)
  1. VIOXX [Suspect]
     Indication: SCIATICA
     Route: 048
     Dates: start: 20010417, end: 20010508
  2. VIOXX [Suspect]
     Route: 048
     Dates: start: 20020201
  3. PANTOPRAZOLE SODIUM [Concomitant]
     Route: 048
     Dates: start: 20040801
  4. PRAVASTATIN SODIUM [Concomitant]
     Route: 048
     Dates: start: 20040801
  5. LORMETAZEPAM [Concomitant]
     Route: 048
     Dates: start: 20040801
  6. DIPYRONE [Concomitant]
     Route: 048
  7. TRAMADOL HYDROCHLORIDE [Concomitant]
     Route: 048
  8. ACETAMINOPHEN AND CODEINE [Concomitant]
     Route: 048
  9. BUPRENORPHINE HYDROCHLORIDE [Concomitant]
     Route: 065

REACTIONS (6)
  - ABDOMINAL PAIN UPPER [None]
  - LUMBAR VERTEBRAL FRACTURE [None]
  - ROAD TRAFFIC ACCIDENT [None]
  - SKIN ULCER [None]
  - THROMBOPHLEBITIS [None]
  - VENOUS INSUFFICIENCY [None]
